FAERS Safety Report 7868347-4 (Version None)
Quarter: 2011Q4

REPORT INFORMATION
  Report Type: 
  Country: None (occurrence: None)
  Receive Date: 20111028
  Receipt Date: 20101213
  Transmission Date: 20120403
  Serious: No
  Sender: FDA-Public Use
  Company Number: US-AMGEN-USASP2010008995

PATIENT
  Age: 46 Year
  Sex: Female

DRUGS (2)
  1. ENBREL [Suspect]
     Indication: RHEUMATOID ARTHRITIS
     Dates: start: 20100611
  2. METHOTREXATE [Concomitant]
     Dates: start: 20100401

REACTIONS (6)
  - FATIGUE [None]
  - INSOMNIA [None]
  - NAUSEA [None]
  - HEADACHE [None]
  - SOMNOLENCE [None]
  - POOR QUALITY SLEEP [None]
